FAERS Safety Report 22017663 (Version 1)
Quarter: 2023Q1

REPORT INFORMATION
  Report Type: Spontaneous
  Country: GB (occurrence: GB)
  Receive Date: 20230221
  Receipt Date: 20230221
  Transmission Date: 20230418
  Serious: Yes (Other)
  Sender: FDA-Public Use
  Company Number: None

PATIENT
  Age: 35 Year
  Sex: Female
  Weight: 92 kg

DRUGS (12)
  1. OMEPRAZOLE [Suspect]
     Active Substance: OMEPRAZOLE
     Indication: Product used for unknown indication
     Dosage: 40 MILLIGRAM, QD
     Route: 048
     Dates: start: 20220427
  2. ACTIVON TULLE [Concomitant]
     Dosage: UNK (USE AS DIRECTED)
     Route: 065
     Dates: start: 20221209, end: 20221216
  3. AZATHIOPRINE [Concomitant]
     Active Substance: AZATHIOPRINE
     Dosage: UNK (TO BE TAKEN AS PER RHEUMATOLOGY ADVICE- INCREA)
     Route: 065
     Dates: start: 20220802
  4. AMOXICILLIN\CLAVULANATE POTASSIUM [Concomitant]
     Active Substance: AMOXICILLIN\CLAVULANATE POTASSIUM
     Dosage: 1 DOSAGE FORM, TID
     Route: 065
     Dates: start: 20221128, end: 20221205
  5. CHOLECALCIFEROL [Concomitant]
     Active Substance: CHOLECALCIFEROL
     Dosage: UNK (USE AS DIRECTED)
     Route: 065
     Dates: start: 20220427
  6. FERROUS FUMARATE [Concomitant]
     Active Substance: FERROUS FUMARATE
     Dosage: 1 DOSAGE FORM, QD(WITH VITAMIN WITH CAN INCREASE T.)
     Route: 065
     Dates: start: 20221108
  7. FLUCLOXACILLIN [Concomitant]
     Active Substance: FLUCLOXACILLIN
     Dosage: 1 DOSAGE FORM, QID
     Route: 065
     Dates: start: 20221209, end: 20221216
  8. FOLIC ACID [Concomitant]
     Active Substance: FOLIC ACID
     Dosage: 1 DOSAGE FORM, QD
     Route: 065
     Dates: start: 20220427
  9. IMURAN [Concomitant]
     Active Substance: AZATHIOPRINE
     Dosage: 150 MILLIGRAM, QD
     Route: 065
     Dates: start: 20220427
  10. KELHALE [Concomitant]
     Dosage: 2 DOSAGE FORM, BID
     Route: 055
     Dates: start: 20220427
  11. ALBUTEROL [Concomitant]
     Active Substance: ALBUTEROL
     Indication: Asthma
     Dosage: 2 DOSAGE FORM (AS NECESSARY)
     Route: 055
     Dates: start: 20220427
  12. URSODIOL [Concomitant]
     Active Substance: URSODIOL
     Dosage: 4 DOSAGE FORM, QD (AT NIGHT)
     Route: 065
     Dates: start: 20220427

REACTIONS (1)
  - Autoimmune neutropenia [Recovered/Resolved]
